FAERS Safety Report 4668735-3 (Version None)
Quarter: 2005Q2

REPORT INFORMATION
  Report Type: 
  Country: None (occurrence: None)
  Receive Date: 20050519
  Receipt Date: 20050506
  Transmission Date: 20051028
  Serious: Yes (Disabling, Other)
  Sender: FDA-Public Use
  Company Number: 2005072046

PATIENT
  Age: 67 Year
  Sex: Female
  Weight: 66.6788 kg

DRUGS (3)
  1. DETROL LA [Suspect]
     Indication: URINARY INCONTINENCE
     Dosage: 4 MG (4 MG, 1 IN 1 D)  ABOUT 2 YRS AGO
  2. TRAZODONE HCL [Concomitant]
  3. VITAMINS (VITAMINS) [Concomitant]

REACTIONS (12)
  - BACK PAIN [None]
  - BLADDER OPERATION [None]
  - CONDITION AGGRAVATED [None]
  - CYSTITIS [None]
  - DEAFNESS [None]
  - EAR DISCOMFORT [None]
  - EAR PAIN [None]
  - EMOTIONAL DISORDER [None]
  - HEADACHE [None]
  - PRURITUS [None]
  - THERAPY NON-RESPONDER [None]
  - URINARY INCONTINENCE [None]
